FAERS Safety Report 14488343 (Version 16)
Quarter: 2019Q1

REPORT INFORMATION
  Report Type: Report from Study
  Country: BE (occurrence: BE)
  Receive Date: 20180205
  Receipt Date: 20190219
  Transmission Date: 20190417
  Serious: Yes (Hospitalization, Other)
  Sender: FDA-Public Use
  Company Number: BE-PFIZER INC-2018042339

PATIENT
  Age: 60 Year
  Sex: Male
  Weight: 69 kg

DRUGS (14)
  1. FLUOROURACIL. [Suspect]
     Active Substance: FLUOROURACIL
     Dosage: 1 (UNITS UNSPECIFIED), UNK
     Route: 040
  2. BUSCOPAN [Concomitant]
     Active Substance: BUTYLSCOPOLAMINE BROMIDE
     Dosage: UNK, AS NEEDED
     Route: 065
     Dates: start: 20170919
  3. BACLOFEN. [Concomitant]
     Active Substance: BACLOFEN
     Indication: HICCUPS
     Dosage: 5 MG, UNK
     Route: 065
     Dates: start: 20170503
  4. FLUOROURACIL. [Suspect]
     Active Substance: FLUOROURACIL
     Indication: COLORECTAL CANCER METASTATIC
     Dosage: 1 (UNITS UNSPECIFIED), CYCLIC
     Route: 042
  5. OLANZAPINE. [Concomitant]
     Active Substance: OLANZAPINE
     Dosage: 20 MG, 2X/DAY
     Route: 065
     Dates: start: 20170503, end: 20171223
  6. PANTOPRAZOLE [Concomitant]
     Active Substance: PANTOPRAZOLE
     Dosage: 20 MG, 1X/DAY
     Route: 065
     Dates: start: 20170601
  7. CIPROXINE /00697201/ [Concomitant]
     Active Substance: CIPROFLOXACIN
     Dosage: 500 MG, 2X/DAY
     Route: 065
     Dates: start: 20171205, end: 20171214
  8. IRINOTECAN HCL [Suspect]
     Active Substance: IRINOTECAN HYDROCHLORIDE
     Indication: COLORECTAL CANCER METASTATIC
     Dosage: UNK, CYCLIC
     Route: 042
  9. AFLIBERCEPT [Suspect]
     Active Substance: AFLIBERCEPT
     Indication: COLORECTAL CANCER METASTATIC
     Dosage: 1 (UNITS UNSPECIFIED), CYCLIC
     Route: 042
  10. LEUCOVORIN. [Suspect]
     Active Substance: LEUCOVORIN
     Indication: COLORECTAL CANCER METASTATIC
     Dosage: 1 UNK, CYCLIC
     Route: 042
  11. TRIPLIXAM [Concomitant]
     Active Substance: AMLODIPINE BESYLATE\INDAPAMIDE\PERINDOPRIL ARGININE
     Dosage: UNK, 1X/DAY
     Route: 065
     Dates: start: 20171102
  12. EMCONCOR [Concomitant]
     Active Substance: BISOPROLOL FUMARATE
     Dosage: 2.5 MG, 1X/DAY
     Route: 065
     Dates: start: 20170523
  13. LAXIDO [Concomitant]
     Active Substance: POLYETHYLENE GLYCOL 3350\POTASSIUM CHLORIDE\SODIUM BICARBONATE\SODIUM CHLORIDE
     Dosage: UNK, AS NEEDED
     Route: 065
     Dates: start: 20170523
  14. IMODIUM [Concomitant]
     Active Substance: LOPERAMIDE HYDROCHLORIDE
     Dosage: UNK, AS NEEDED,
     Route: 065
     Dates: start: 20170919

REACTIONS (2)
  - Neutropenia [Recovered/Resolved]
  - Mesenteric artery thrombosis [Not Recovered/Not Resolved]

NARRATIVE: CASE EVENT DATE: 20171229
